FAERS Safety Report 17404040 (Version 1)
Quarter: 2020Q1

REPORT INFORMATION
  Report Type: Spontaneous
  Country: FR (occurrence: FR)
  Receive Date: 20200211
  Receipt Date: 20200211
  Transmission Date: 20200409
  Serious: Yes (Hospitalization, Other)
  Sender: FDA-Public Use
  Company Number: FR-MYLANLABS-2020M1015399

PATIENT
  Age: 45 Year
  Sex: Female

DRUGS (4)
  1. IMIJECT                            /01044802/ [Suspect]
     Active Substance: SUMATRIPTAN SUCCINATE
     Indication: VASCULAR PAIN
     Dosage: 6 MG(ILLEGIBLE))
     Route: 058
  2. KETOPROFEN. [Suspect]
     Active Substance: KETOPROFEN
     Indication: PRODUCT USED FOR UNKNOWN INDICATION
     Dosage: 2 DF, QD
     Route: 048
  3. ACUPAN [Suspect]
     Active Substance: NEFOPAM HYDROCHLORIDE
     Indication: PRODUCT USED FOR UNKNOWN INDICATION
     Dosage: UNK
     Route: 048
     Dates: start: 201310
  4. DOLIPRANE [Suspect]
     Active Substance: ACETAMINOPHEN
     Indication: PRODUCT USED FOR UNKNOWN INDICATION
     Dosage: UNK UNK, QD
     Route: 048

REACTIONS (4)
  - Loss of consciousness [Recovering/Resolving]
  - Syncope [Unknown]
  - Tachycardia [Recovering/Resolving]
  - Tremor [Recovering/Resolving]
